FAERS Safety Report 9094425 (Version 1)
Quarter: 2013Q1

REPORT INFORMATION
  Report Type: Spontaneous
  Country: IL (occurrence: IL)
  Receive Date: 20130218
  Receipt Date: 20130218
  Transmission Date: 20140127
  Serious: Yes (Disabling, Other)
  Sender: FDA-Public Use
  Company Number: IL-TEVA-385843ISR

PATIENT
  Age: 37 Year
  Sex: Female

DRUGS (6)
  1. SEASONIQUE [Suspect]
     Indication: ENDOMETRIOSIS
     Dosage: 1 TABLET DAILY;
     Route: 048
     Dates: start: 20130206, end: 20130208
  2. B12 [Concomitant]
  3. ZINC [Concomitant]
  4. BIO CRAN [Concomitant]
  5. VITAMIN C [Concomitant]
  6. VITAMIN D [Concomitant]

REACTIONS (5)
  - Hypoacusis [Recovered/Resolved]
  - Dyspnoea [Recovered/Resolved]
  - Vision blurred [Recovered/Resolved]
  - Asthenia [Recovering/Resolving]
  - Dizziness [Recovered/Resolved]
